FAERS Safety Report 8216094-1 (Version None)
Quarter: 2012Q1

REPORT INFORMATION
  Report Type: 
  Country: None (occurrence: None)
  Receive Date: 20120316
  Receipt Date: 20120308
  Transmission Date: 20120608
  Serious: Yes (Hospitalization)
  Sender: FDA-Public Use
  Company Number: US-BAYER-2012-023933

PATIENT
  Age: 24 Year
  Sex: Female
  Weight: 98.912 kg

DRUGS (11)
  1. TOPAMAX [Concomitant]
     Indication: PAIN IN EXTREMITY
     Dosage: UNK
     Dates: start: 20111024
  2. YASMIN [Suspect]
     Indication: CONTRACEPTION
     Dosage: UNK
     Dates: start: 20060101, end: 20111117
  3. LIDODERM [Concomitant]
  4. GABAPENTIN [Concomitant]
  5. ATARAX [Concomitant]
     Indication: PRURITUS
     Dosage: UNK
     Dates: start: 20111017
  6. VALIUM [Concomitant]
     Indication: ANXIETY
     Dosage: UNK
     Dates: start: 20111024
  7. KENALOG IN ORABASE [Concomitant]
     Indication: RASH
     Dosage: UNK
     Dates: start: 20111017
  8. LYRICA [Concomitant]
     Dosage: UNK
     Dates: start: 20111201
  9. NEURONTIN [Concomitant]
     Dosage: UNK
     Dates: start: 20111201
  10. ASPIRIN [Concomitant]
  11. PERCOCET [Concomitant]
     Indication: PAIN

REACTIONS (3)
  - DEEP VEIN THROMBOSIS [None]
  - VENA CAVA THROMBOSIS [None]
  - PELVIC VENOUS THROMBOSIS [None]
